FAERS Safety Report 7319677-6 (Version None)
Quarter: 2011Q1

REPORT INFORMATION
  Report Type: 
  Country: None (occurrence: None)
  Receive Date: 20110228
  Receipt Date: 20100721
  Transmission Date: 20110831
  Serious: No
  Sender: FDA-Public Use
  Company Number: A0871666A

PATIENT
  Age: 56 Year
  Sex: Female

DRUGS (4)
  1. ALLERGY MEDICATION [Concomitant]
  2. ASPIRIN [Concomitant]
  3. LAMICTAL [Suspect]
     Indication: DEPRESSION
     Dosage: 150MG PER DAY
     Route: 048
     Dates: start: 20100101
  4. THYROID [Concomitant]

REACTIONS (2)
  - WEIGHT INCREASED [None]
  - CONSTIPATION [None]
